FAERS Safety Report 5777668-0 (Version None)
Quarter: 2008Q2

REPORT INFORMATION
  Report Type: 
  Country: None (occurrence: None)
  Receive Date: 20080618
  Receipt Date: 20080616
  Transmission Date: 20081010
  Serious: Yes (Disabling)
  Sender: FDA-Public Use
  Company Number: US-ASTRAZENECA-2008UW12141

PATIENT
  Age: 66 Year
  Sex: Male
  Weight: 85.7 kg

DRUGS (5)
  1. PRILOSEC [Suspect]
     Indication: GASTROOESOPHAGEAL REFLUX DISEASE
     Route: 048
  2. PRILOSEC [Suspect]
     Dosage: GENERIC OMEPRAZOLE
     Route: 048
     Dates: end: 20080614
  3. PRILOSEC OTC [Suspect]
     Indication: GASTROOESOPHAGEAL REFLUX DISEASE
     Route: 048
  4. LIPITOR [Concomitant]
     Dosage: 10 MG
  5. LISINOPRIL [Concomitant]
     Dosage: 10 MG
     Route: 048

REACTIONS (3)
  - CARPAL TUNNEL SYNDROME [None]
  - HYPOAESTHESIA [None]
  - PARAESTHESIA [None]
